FAERS Safety Report 7099511-2 (Version None)
Quarter: 2010Q4

REPORT INFORMATION
  Report Type: 
  Country: None (occurrence: None)
  Receive Date: 20101104
  Receipt Date: 20101020
  Transmission Date: 20110411
  Serious: Yes (Other)
  Sender: FDA-Public Use
  Company Number: 018864

PATIENT
  Sex: Female
  Weight: 46 kg

DRUGS (12)
  1. CIMZIA [Suspect]
     Indication: CROHN'S DISEASE
     Dosage: (400 MG 1X/MONTH SUBCUTANEOUS)
     Route: 058
     Dates: start: 20100517
  2. ASACOL [Concomitant]
  3. FOLIC ACID [Concomitant]
  4. WELCHOL [Concomitant]
  5. CETIRIZINE HCL [Concomitant]
  6. CALCIUM [Concomitant]
  7. IMODIUM /01493801/ [Concomitant]
  8. ATIVAN [Concomitant]
  9. POTASSIUM CHLORIDE [Concomitant]
  10. LISINOPRIL AND HYDROCHLOROTHIAZIDE [Concomitant]
  11. KLOR-CON [Concomitant]
  12. NEURONTIN [Concomitant]

REACTIONS (15)
  - ABDOMINAL PAIN [None]
  - ANAEMIA [None]
  - CONDITION AGGRAVATED [None]
  - DEFAECATION URGENCY [None]
  - DIARRHOEA [None]
  - DISEASE RECURRENCE [None]
  - DRUG EFFECT DECREASED [None]
  - FATIGUE [None]
  - FREQUENT BOWEL MOVEMENTS [None]
  - IMPAIRED DRIVING ABILITY [None]
  - LEGAL PROBLEM [None]
  - MIGRAINE [None]
  - NAUSEA [None]
  - PSORIASIS [None]
  - SLEEP ATTACKS [None]
